FAERS Safety Report 6349750-0 (Version None)
Quarter: 2009Q3

REPORT INFORMATION
  Report Type: 
  Country: None (occurrence: None)
  Receive Date: 20090911
  Receipt Date: 20090908
  Transmission Date: 20100115
  Serious: Yes (Other)
  Sender: FDA-Public Use
  Company Number: PHHY2008CA14434

PATIENT
  Sex: Female

DRUGS (3)
  1. SANDOSTATIN LAR [Suspect]
     Indication: ACROMEGALY
     Dosage: 20 MG, QMO
     Route: 030
     Dates: start: 20041228
  2. FOSINOPRIL SODIUM [Concomitant]
     Dosage: 1 DF
  3. NOVOHYDRAZIDE [Concomitant]
     Indication: BLOOD PRESSURE
     Dosage: 1/2 TAB

REACTIONS (2)
  - DYSPNOEA [None]
  - HEART RATE DECREASED [None]
